FAERS Safety Report 5142531-5 (Version None)
Quarter: 2006Q4

REPORT INFORMATION
  Report Type: 
  Country: None (occurrence: None)
  Receive Date: 20061102
  Receipt Date: 20061027
  Transmission Date: 20070319
  Serious: Yes (Life-Threatening, Hospitalization, Disabling)
  Sender: FDA-Public Use
  Company Number: GB-SANOFI-SYNTHELABO-A01200609172

PATIENT
  Age: 39 Year
  Sex: Female

DRUGS (2)
  1. CAPECITABINE [Suspect]
     Dosage: DOSE NOT SPECIFIED
  2. OXALIPLATIN [Suspect]
     Dosage: DOSE NOT SPECIFIED
     Route: 041

REACTIONS (1)
  - LARYNGOSPASM [None]
